FAERS Safety Report 9649813 (Version 2)
Quarter: 2013Q4

REPORT INFORMATION
  Report Type: Spontaneous
  Country: US (occurrence: US)
  Receive Date: 20131028
  Receipt Date: 20131028
  Transmission Date: 20140711
  Serious: Yes (Hospitalization, Other)
  Sender: FDA-Public Use
  Company Number: US-NAPPMUNDI-USA-2003-0010068

PATIENT
  Age: 39 Year
  Sex: Female

DRUGS (6)
  1. OXYCONTIN TABLETS [Suspect]
     Indication: PRODUCT USED FOR UNKNOWN INDICATION
     Dosage: UNK MG, SEE TEXT
     Route: 065
  2. COCAINE [Suspect]
     Indication: PRODUCT USED FOR UNKNOWN INDICATION
     Dosage: UNK UNK, UNK
     Route: 065
  3. PERCOCET /00867901/ [Suspect]
     Indication: PRODUCT USED FOR UNKNOWN INDICATION
  4. AMBIEN [Suspect]
     Indication: PRODUCT USED FOR UNKNOWN INDICATION
  5. VALIUM                             /00017001/ [Concomitant]
     Indication: PRODUCT USED FOR UNKNOWN INDICATION
  6. XANAX [Concomitant]
     Indication: PRODUCT USED FOR UNKNOWN INDICATION

REACTIONS (12)
  - Accidental overdose [Unknown]
  - Intentional overdose [Unknown]
  - Substance abuse [Unknown]
  - Drug dependence [Unknown]
  - Heart rate increased [Unknown]
  - Mydriasis [Unknown]
  - Gait disturbance [Unknown]
  - Rhinorrhoea [Unknown]
  - Abnormal behaviour [Unknown]
  - Euphoric mood [Unknown]
  - Dysarthria [Unknown]
  - Malaise [Unknown]
